FAERS Safety Report 5957503-8 (Version None)
Quarter: 2008Q4

REPORT INFORMATION
  Report Type: 
  Country: None (occurrence: None)
  Receive Date: 20081112
  Receipt Date: 20081103
  Transmission Date: 20090506
  Serious: Yes (Hospitalization)
  Sender: FDA-Public Use
  Company Number: WAES 0809USA01240

PATIENT
  Age: 60 Year
  Sex: Female
  Weight: 41.2773 kg

DRUGS (15)
  1. FOSAMAX [Suspect]
     Indication: OSTEOPOROSIS
     Dosage: 35 MG/WKY/PO
     Route: 048
     Dates: start: 20080331
  2. TAB BLINDED THERAPY UNK [Suspect]
     Indication: OSTEOARTHRITIS
     Dosage: /TID/PO
     Route: 048
     Dates: start: 20070330, end: 20080821
  3. PROAIR HFA [Concomitant]
  4. ASPIRIN [Concomitant]
  5. ATORVASTATIN CALCIUM [Concomitant]
  6. CALCIUM (UNSPECIFIED) [Concomitant]
  7. CAPTOPRIL [Concomitant]
  8. CLOPIDOGREL BISULFATE [Concomitant]
  9. CYCLOBENZAPRINE HCL [Concomitant]
  10. METOCLOPRAMIDE [Concomitant]
  11. METOPROLOL [Concomitant]
  12. OMEPRAZOLE [Concomitant]
  13. TERAZOSIN HYDROCHLORIDE [Concomitant]
  14. THEOPHYLLINE [Concomitant]
  15. ZOLPIDEM TARTRATE [Concomitant]

REACTIONS (4)
  - GASTROINTESTINAL HAEMORRHAGE [None]
  - HAEMOPTYSIS [None]
  - HIATUS HERNIA [None]
  - TUBERCULOSIS [None]
